FAERS Safety Report 5284274-3 (Version None)
Quarter: 2007Q2

REPORT INFORMATION
  Report Type: 
  Country: None (occurrence: None)
  Receive Date: 20070403
  Receipt Date: 20070329
  Transmission Date: 20071010
  Serious: Yes (Hospitalization)
  Sender: FDA-Public Use
  Company Number: PHNU2007DE01396

PATIENT
  Age: 51 Year
  Sex: Female

DRUGS (1)
  1. IMMUNOSPORIN [Suspect]
     Indication: PSORIASIS
     Dosage: 150MG/DAY

REACTIONS (1)
  - HYPERTENSIVE CRISIS [None]
